FAERS Safety Report 11409086 (Version 3)
Quarter: 2015Q3

REPORT INFORMATION
  Report Type: Spontaneous
  Country: IT (occurrence: IT)
  Receive Date: 20150824
  Receipt Date: 20150930
  Transmission Date: 20151125
  Serious: Yes (Hospitalization)
  Sender: FDA-Public Use
  Company Number: IT-009507513-1508ITA008907

PATIENT
  Age: 75 Year
  Sex: Male

DRUGS (10)
  1. CARDIOASPIRIN [Concomitant]
     Active Substance: ASPIRIN
     Dosage: UNKNOWN
     Route: 048
  2. KANRENOL [Suspect]
     Active Substance: CANRENOATE POTASSIUM
     Dosage: 25 MG, QD (DAILY)
     Route: 048
  3. NOVO-NORM [Concomitant]
     Active Substance: REPAGLINIDE
     Dosage: UNKNOWN
     Route: 048
  4. NOVO-NORM [Concomitant]
     Active Substance: REPAGLINIDE
     Dosage: UNKNOWN
     Route: 048
  5. SEQUACOR [Concomitant]
     Active Substance: BISOPROLOL
     Dosage: UNKNOWN
     Route: 048
  6. LANTUS [Concomitant]
     Active Substance: INSULIN GLARGINE
     Dosage: STRENGTH: 100 IU/ML
     Route: 058
  7. ORAMORPH [Concomitant]
     Active Substance: MORPHINE SULFATE
     Dosage: STRENGTH: 20 MG/ML
     Route: 048
  8. LASIX [Suspect]
     Active Substance: FUROSEMIDE
     Dosage: 375 MG, QD (DAILY)
     Route: 048
  9. OMEPRAZOLE. [Concomitant]
     Active Substance: OMEPRAZOLE
     Dosage: UNKNOWN
     Route: 048
  10. LOSARTAN POTASSIUM. [Suspect]
     Active Substance: LOSARTAN POTASSIUM
     Dosage: 150 MG, QD (DAILY)
     Route: 048

REACTIONS (4)
  - Dyspnoea [Recovering/Resolving]
  - Hyperkalaemia [Recovering/Resolving]
  - Atrial flutter [Recovering/Resolving]
  - Dehydration [Recovering/Resolving]

NARRATIVE: CASE EVENT DATE: 20150703
